FAERS Safety Report 24571311 (Version 2)
Quarter: 2024Q4

REPORT INFORMATION
  Report Type: Report from Study
  Country: US (occurrence: US)
  Receive Date: 20241101
  Receipt Date: 20241121
  Transmission Date: 20250115
  Serious: Yes (Hospitalization, Other)
  Sender: TAKEDA
  Company Number: US-TAKEDA-2021TUS032579

PATIENT
  Age: 43 Year
  Sex: Female

DRUGS (4)
  1. HUMAN IMMUNOGLOBULIN G [Suspect]
     Active Substance: HUMAN IMMUNOGLOBULIN G
     Indication: Immunodeficiency
     Dosage: UNK
  2. GAMMAGARD LIQUID [Suspect]
     Active Substance: HUMAN IMMUNOGLOBULIN G
     Indication: Primary immunodeficiency syndrome
     Dosage: 30 GRAM
  3. GAMMAGARD LIQUID [Suspect]
     Active Substance: HUMAN IMMUNOGLOBULIN G
     Indication: Immunodeficiency common variable
     Dosage: UNK UNK, MONTHLY
  4. GAMMAGARD LIQUID [Suspect]
     Active Substance: HUMAN IMMUNOGLOBULIN G
     Dosage: 35 GRAM, MONTHLY

REACTIONS (24)
  - Pancreatitis [Unknown]
  - Injection site inflammation [Unknown]
  - Injection site erythema [Unknown]
  - Injection site pain [Unknown]
  - Dizziness [Recovering/Resolving]
  - Arthralgia [Unknown]
  - Fatigue [Recovering/Resolving]
  - Nausea [Recovering/Resolving]
  - Pruritus [Unknown]
  - Poor venous access [Unknown]
  - Increased tendency to bruise [Recovering/Resolving]
  - Incorrect drug administration rate [Unknown]
  - Product dose omission issue [Unknown]
  - Inappropriate schedule of product administration [Unknown]
  - Chronic fatigue syndrome [Unknown]
  - Balance disorder [Recovering/Resolving]
  - Infusion site mass [Unknown]
  - Infusion site bruising [Unknown]
  - Chest discomfort [Recovering/Resolving]
  - Paraesthesia [Recovering/Resolving]
  - Urticaria [Unknown]
  - Infusion site pain [Unknown]
  - Infusion site swelling [Unknown]
  - COVID-19 [Unknown]

NARRATIVE: CASE EVENT DATE: 20221010
